FAERS Safety Report 9977671 (Version 1)
Quarter: 2014Q1

REPORT INFORMATION
  Report Type: Report from Study
  Country: US (occurrence: US)
  Receive Date: 20140306
  Receipt Date: 20140306
  Transmission Date: 20141002
  Serious: No
  Sender: FDA-Public Use
  Company Number: US-ABBVIE-13P-163-1163274-00

PATIENT
  Age: 43 Year
  Sex: Female

DRUGS (11)
  1. HUMIRA [Suspect]
     Indication: RHEUMATOID ARTHRITIS
  2. PREDNISONE [Concomitant]
     Indication: RHEUMATOID ARTHRITIS
  3. VITAMIN D [Concomitant]
     Indication: VITAMIN SUPPLEMENTATION
  4. IRON [Concomitant]
     Indication: BLOOD IRON DECREASED
  5. PREVASTATIN [Concomitant]
     Indication: BLOOD CHOLESTEROL INCREASED
  6. METFORMIN [Concomitant]
     Indication: WEIGHT DECREASED
  7. METFORMIN [Concomitant]
     Indication: BLOOD GLUCOSE ABNORMAL
     Dates: start: 2006
  8. LABETALOL [Concomitant]
     Indication: BLOOD PRESSURE
  9. LASIX [Concomitant]
     Indication: BLOOD PRESSURE
     Dosage: TAKE WHEN B/P OVER 160
  10. LISINOPRIL [Concomitant]
     Indication: BLOOD PRESSURE
  11. POTASSIUM [Concomitant]
     Indication: BLOOD POTASSIUM DECREASED

REACTIONS (12)
  - Joint swelling [Unknown]
  - Hypoaesthesia [Not Recovered/Not Resolved]
  - Migraine [Unknown]
  - Blood pressure increased [Unknown]
  - Paraesthesia [Not Recovered/Not Resolved]
  - Hypoaesthesia [Not Recovered/Not Resolved]
  - Sputum discoloured [Unknown]
  - Dyspnoea [Unknown]
  - Feeling cold [Unknown]
  - Burning sensation [Unknown]
  - Burning sensation [Unknown]
  - Blood potassium decreased [Unknown]
